FAERS Safety Report 8432611 (Version 2)
Quarter: 2013Q3

REPORT INFORMATION
  Report Type: Report from Study
  Country: US (occurrence: US)
  Receive Date: 20120229
  Receipt Date: 20130712
  Transmission Date: 20140515
  Serious: Yes (Hospitalization, Other)
  Sender: FDA-Public Use
  Company Number: US-ASTELLAS-2012US002180

PATIENT
  Age: 46 Year
  Sex: Male
  Weight: 82 kg

DRUGS (5)
  1. ERLOTINIB TABLET [Suspect]
     Indication: PANCREATIC CARCINOMA METASTATIC
     Dosage: 100 MG, UID/QD
     Route: 048
     Dates: start: 20120108
  2. ERLOTINIB TABLET [Suspect]
     Dosage: 100 MG, UID/QD
     Route: 048
     Dates: start: 20100801, end: 20130604
  3. DOXYCYCLINE [Concomitant]
     Indication: INFECTION
     Dosage: UNK
     Route: 048
  4. HEPARIN SODIUM [Concomitant]
     Indication: PRODUCT USED FOR UNKNOWN INDICATION
     Dosage: UNK
     Route: 065
  5. CHEMOTHERAPEUTICS [Concomitant]
     Indication: PRODUCT USED FOR UNKNOWN INDICATION
     Dosage: UNK
     Route: 065

REACTIONS (4)
  - Foot fracture [Not Recovered/Not Resolved]
  - Hepatic neoplasm [Unknown]
  - Rash [Not Recovered/Not Resolved]
  - Rash [Unknown]
